FAERS Safety Report 12840097 (Version 1)
Quarter: 2016Q4

REPORT INFORMATION
  Report Type: Spontaneous
  Country: US (occurrence: US)
  Receive Date: 20161012
  Receipt Date: 20161012
  Transmission Date: 20170207
  Serious: Yes (Other)
  Sender: FDA-Public Use
  Company Number: US-PFIZER INC-2016473807

PATIENT
  Age: 59 Year
  Sex: Female

DRUGS (1)
  1. XELJANZ [Suspect]
     Active Substance: TOFACITINIB CITRATE
     Dosage: 5 MG
     Dates: start: 201511

REACTIONS (6)
  - Photophobia [Unknown]
  - Dizziness [Unknown]
  - Dysarthria [Unknown]
  - Nausea [Unknown]
  - Blindness [Unknown]
  - Headache [Unknown]
